FAERS Safety Report 6584904-X (Version None)
Quarter: 2010Q1

REPORT INFORMATION
  Report Type: 
  Country: None (occurrence: None)
  Receive Date: 20100217
  Receipt Date: 20100212
  Transmission Date: 20100710
  Serious: Yes (Hospitalization)
  Sender: FDA-Public Use
  Company Number: FR-WYE-G05562810

PATIENT
  Sex: Female
  Weight: 18 kg

DRUGS (3)
  1. IBUPROFEN (ADVIL) [Suspect]
     Indication: PYREXIA
     Dosage: UNKNOWN
     Route: 048
     Dates: start: 20091028, end: 20091102
  2. DOLIPRANE [Concomitant]
     Indication: PYREXIA
     Dosage: UNKNOWN
     Dates: start: 20091028
  3. HELICIDINE [Concomitant]
     Indication: COUGH
     Dosage: UNKNOWN
     Dates: start: 20091029

REACTIONS (5)
  - BREATH SOUNDS ABSENT [None]
  - CONDITION AGGRAVATED [None]
  - PLEURAL EFFUSION [None]
  - PNEUMONIA PNEUMOCOCCAL [None]
  - USE OF ACCESSORY RESPIRATORY MUSCLES [None]
